FAERS Safety Report 11246343 (Version 1)
Quarter: 2015Q3

REPORT INFORMATION
  Report Type: Spontaneous
  Country: US (occurrence: None)
  Receive Date: 20150706
  Receipt Date: 20150706
  Transmission Date: 20151125
  Serious: No
  Sender: FDA-Public Use
  Company Number: 15AE031

PATIENT
  Sex: Male

DRUGS (6)
  1. PREDNISONE. [Concomitant]
     Active Substance: PREDNISONE
  2. OFEV [Concomitant]
     Active Substance: NINTEDANIB
  3. WARFARIN [Concomitant]
     Active Substance: WARFARIN
  4. VAPRINO A-D [Suspect]
     Active Substance: LOPERAMIDE HYDROCHLORIDE
     Indication: DIARRHOEA
     Dosage: UNIQUE ID: TABLET IMPRINT V AD
  5. CELEXA [Concomitant]
     Active Substance: CITALOPRAM HYDROBROMIDE
  6. PRIMIDONE. [Concomitant]
     Active Substance: PRIMIDONE

REACTIONS (2)
  - Constipation [None]
  - Diarrhoea [None]
